FAERS Safety Report 20427853 (Version 2)
Quarter: 2022Q1

REPORT INFORMATION
  Report Type: Report from Study
  Country: PR (occurrence: PR)
  Receive Date: 20220204
  Receipt Date: 20220204
  Transmission Date: 20220423
  Serious: Yes (Life-Threatening, Other)
  Sender: FDA-Public Use
  Company Number: PR-ABBVIE-22K-131-4264089-00

PATIENT
  Age: 49 Year
  Sex: Male
  Weight: 76.726 kg

DRUGS (9)
  1. HUMIRA [Suspect]
     Active Substance: ADALIMUMAB
     Indication: Rheumatoid arthritis
     Route: 058
     Dates: start: 201908
  2. TOZINAMERAN [Concomitant]
     Active Substance: TOZINAMERAN
     Indication: COVID-19 immunisation
     Route: 030
     Dates: start: 20201212, end: 20201212
  3. TOZINAMERAN [Concomitant]
     Active Substance: TOZINAMERAN
     Route: 030
     Dates: start: 20210111, end: 20210111
  4. TOZINAMERAN [Concomitant]
     Active Substance: TOZINAMERAN
     Route: 030
     Dates: start: 20220118, end: 20220118
  5. PREDNISONE [Concomitant]
     Active Substance: PREDNISONE
     Indication: Inflammation
     Route: 048
     Dates: start: 2017
  6. BAYER ADVANCED ASPIRIN [Concomitant]
     Indication: Chest pain
     Route: 048
  7. MELOXICAM [Concomitant]
     Active Substance: MELOXICAM
     Indication: Pain
     Route: 048
  8. LOSARTAN [Concomitant]
     Active Substance: LOSARTAN
     Indication: Hypertension
     Route: 048
     Dates: start: 202112
  9. ADVIL DUAL ACTION WITH ACETAMINOPHEN [Concomitant]
     Active Substance: ACETAMINOPHEN\IBUPROFEN
     Indication: Pain
     Dosage: 250MG/125MG
     Dates: start: 2020

REACTIONS (2)
  - Suicidal ideation [Unknown]
  - Mental disorder [Not Recovered/Not Resolved]

NARRATIVE: CASE EVENT DATE: 20220101
